FAERS Safety Report 16588967 (Version 6)
Quarter: 2020Q4

REPORT INFORMATION
  Report Type: Report from Study
  Country: US (occurrence: US)
  Receive Date: 20190718
  Receipt Date: 20201104
  Transmission Date: 20210113
  Serious: Yes (Death, Life-Threatening, Other)
  Sender: FDA-Public Use
  Company Number: PHEH2019US029098

PATIENT
  Age: 64 Year
  Sex: Female
  Weight: 49 kg

DRUGS (3)
  1. CYCLOPHOSPHAMIDE. [Concomitant]
     Active Substance: CYCLOPHOSPHAMIDE
     Indication: CHEMOTHERAPY
     Dosage: UNK
     Route: 065
  2. FLUDARABINE [Concomitant]
     Active Substance: FLUDARABINE PHOSPHATE
     Indication: CHEMOTHERAPY
     Dosage: UNK
     Route: 065
  3. KYMRIAH [Suspect]
     Active Substance: TISAGENLECLEUCEL
     Indication: DIFFUSE LARGE B-CELL LYMPHOMA
     Dosage: UNK
     Route: 041
     Dates: start: 20190521

REACTIONS (24)
  - Hypotension [Unknown]
  - Hemiparesis [Unknown]
  - Chills [Unknown]
  - Haematocrit decreased [Unknown]
  - Staphylococcal infection [Unknown]
  - Hypogammaglobulinaemia [Unknown]
  - Diffuse large B-cell lymphoma [Fatal]
  - Fatigue [Unknown]
  - Memory impairment [Unknown]
  - Partial seizures [Unknown]
  - Haemoglobin decreased [Unknown]
  - Malignant neoplasm progression [Fatal]
  - Tachycardia [Unknown]
  - Aphasia [Unknown]
  - Somnolence [Unknown]
  - Encephalopathy [Unknown]
  - Neurotoxicity [Recovered/Resolved]
  - Rhinovirus infection [Unknown]
  - Cytokine release syndrome [Recovered/Resolved]
  - Platelet count decreased [Unknown]
  - White blood cell count decreased [Unknown]
  - Diffuse large B-cell lymphoma recurrent [Fatal]
  - Pyrexia [Unknown]
  - Lymphocyte count decreased [Unknown]

NARRATIVE: CASE EVENT DATE: 20190522
